FAERS Safety Report 14498183 (Version 1)
Quarter: 2018Q1

REPORT INFORMATION
  Report Type: Spontaneous
  Country: CA (occurrence: CA)
  Receive Date: 20180207
  Receipt Date: 20180207
  Transmission Date: 20180509
  Serious: Yes (Other)
  Sender: FDA-Public Use
  Company Number: CA-PFIZER INC-2018051793

PATIENT
  Age: 52 Year
  Sex: Female
  Weight: 91 kg

DRUGS (2)
  1. CO QUETIAPINE [Suspect]
     Active Substance: QUETIAPINE FUMARATE
     Dosage: 2 DF, 1X/DAY
     Route: 048
  2. PRISTIQ EXTENDED-RELEASE [Suspect]
     Active Substance: DESVENLAFAXINE SUCCINATE
     Dosage: UNK

REACTIONS (3)
  - Herpes zoster [Recovered/Resolved]
  - Oral candidiasis [Recovered/Resolved]
  - Cough [Recovered/Resolved]
